FAERS Safety Report 4283268-4 (Version None)
Quarter: 2004Q1

REPORT INFORMATION
  Report Type: 
  Country: None (occurrence: None)
  Receive Date: 20040129
  Receipt Date: 20040116
  Transmission Date: 20041129
  Serious: Yes (Death)
  Sender: FDA-Public Use
  Company Number: 2004-DE-00309GD

PATIENT

DRUGS (2)
  1. PREDNISONE [Suspect]
     Indication: INTERSTITIAL LUNG DISEASE
     Dosage: 10 MG
  2. COLCHICINE (COLCHICINE) [Suspect]
     Indication: INTERSTITIAL LUNG DISEASE
     Dosage: 1 MG, PO
     Route: 048

REACTIONS (1)
  - DEATH [None]
